FAERS Safety Report 8357923-0 (Version None)
Quarter: 2012Q2

REPORT INFORMATION
  Report Type: 
  Country: None (occurrence: None)
  Receive Date: 20120514
  Receipt Date: 20120504
  Transmission Date: 20120825
  Serious: Yes (Other)
  Sender: FDA-Public Use
  Company Number: DE-JNJFOC-20120508440

PATIENT
  Sex: Male
  Weight: 90 kg

DRUGS (6)
  1. ASPIRIN [Concomitant]
  2. OPIUM/NALOXONE TAB [Concomitant]
  3. RIFAMPICIN [Concomitant]
  4. AMOCLAV [Concomitant]
  5. XARELTO [Suspect]
     Indication: PROPHYLAXIS
     Route: 048
  6. XARELTO [Suspect]
     Route: 048
     Dates: start: 20120424, end: 20120427

REACTIONS (4)
  - PULMONARY EMBOLISM [None]
  - CIRCULATORY COLLAPSE [None]
  - PAIN [None]
  - THROMBOSIS [None]
